FAERS Safety Report 23149478 (Version 6)
Quarter: 2024Q1

REPORT INFORMATION
  Report Type: Spontaneous
  Country: ES (occurrence: ES)
  Receive Date: 20231106
  Receipt Date: 20240220
  Transmission Date: 20240409
  Serious: Yes (Hospitalization, Other)
  Sender: FDA-Public Use
  Company Number: ES-CELLTRION HEALTHCARE HUNGARY KFT-2023ES020390

PATIENT
  Age: 71 Year
  Sex: Female
  Weight: 76.4 kg

DRUGS (16)
  1. LENALIDOMIDE [Suspect]
     Active Substance: LENALIDOMIDE
     Indication: Follicular lymphoma
     Dosage: LAST DOSE PRIOR TO THE SERIOUS ADVERSE EVENT
     Route: 048
  2. LENALIDOMIDE [Suspect]
     Active Substance: LENALIDOMIDE
     Dosage: LAST DOSES OF INCMOR00208/PLACEBO, LENALIDOMIDE AND RITUXIMAB, PRIOR TO THE SAE TAKEN
     Route: 048
     Dates: start: 20231002
  3. LENALIDOMIDE [Suspect]
     Active Substance: LENALIDOMIDE
     Dosage: 20 MILLIGRAM, QD  DAYS 1-21
     Route: 048
     Dates: start: 20230720, end: 20230924
  4. LENALIDOMIDE [Suspect]
     Active Substance: LENALIDOMIDE
     Dosage: 20 MILLIGRAM (LAST DOSE OF LENALIDOMIDE PRIOR TO THE SAE OF FEVER WAS TAKEN)
     Route: 048
     Dates: start: 20231109, end: 20231112
  5. LENALIDOMIDE [Suspect]
     Active Substance: LENALIDOMIDE
     Dosage: 20MG(LASTDOSEOFINCMOR00208/PLACEBO,LENALIDOMIDEANDRITUXIMAB PRIORTOSAEOFLUNGINFECTION,2NDOCCURRENCE)
     Route: 048
     Dates: start: 20231116
  6. RITUXIMAB [Suspect]
     Active Substance: RITUXIMAB
     Indication: Follicular lymphoma
     Dosage: 690 MG (LAST DOSE PRIOR SERIOUS ADVERSE EVENT)
     Route: 042
  7. RITUXIMAB [Suspect]
     Active Substance: RITUXIMAB
     Dosage: 694 MILLIGRAM CYCLICAL 375 MH/SQ.M) FOR 5 CYCLES
     Route: 042
     Dates: start: 20230720
  8. RITUXIMAB [Suspect]
     Active Substance: RITUXIMAB
     Dosage: PLACEBO, LENALIDOMIDE AND RITUXIMAB, PRIOR TO THE SAE
     Route: 042
     Dates: start: 20231002
  9. RITUXIMAB [Suspect]
     Active Substance: RITUXIMAB
     Dosage: 679 MILLIGRAM (PLACEBO AND RITUXIMAB PRIOR TO THE SAE OF FEVER WERE TAKEN)
     Route: 042
     Dates: start: 20231109, end: 20231113
  10. TAFASITAMAB [Suspect]
     Active Substance: TAFASITAMAB
     Indication: Follicular lymphoma
     Dosage: 974 MILLIGRAM
     Route: 042
     Dates: start: 20230720
  11. TAFASITAMAB [Suspect]
     Active Substance: TAFASITAMAB
     Dosage: LAST DOSES OF INCMOR00208/PLACEBO, LENALIDOMIDE AND RITUXIMAB, PRIOR TO THE SAE WAS TAKEN
     Route: 042
     Dates: start: 20231002
  12. TAFASITAMAB [Suspect]
     Active Substance: TAFASITAMAB
     Dosage: UNK
     Route: 042
  13. TAFASITAMAB [Suspect]
     Active Substance: TAFASITAMAB
     Dosage: LAST DOSE PRIOR TO THE SERIOUS ADVERSE EVENT
     Route: 042
     Dates: start: 20231109, end: 20231113
  14. TAFASITAMAB [Suspect]
     Active Substance: TAFASITAMAB
     Dosage: UNK
     Route: 065
     Dates: start: 20231122
  15. TAFASITAMAB [Suspect]
     Active Substance: TAFASITAMAB
     Dosage: UNK
     Route: 065
     Dates: start: 20231207
  16. LEVOFLOXACIN [Concomitant]
     Active Substance: LEVOFLOXACIN
     Dosage: UNK
     Route: 065

REACTIONS (3)
  - COVID-19 pneumonia [Recovered/Resolved]
  - Pneumonia [Recovered/Resolved]
  - Respiratory tract infection [Not Recovered/Not Resolved]

NARRATIVE: CASE EVENT DATE: 20230824
